FAERS Safety Report 8498621-2 (Version None)
Quarter: 2012Q3

REPORT INFORMATION
  Report Type: 
  Country: None (occurrence: None)
  Receive Date: 20120709
  Receipt Date: 20120628
  Transmission Date: 20120928
  Serious: No
  Sender: FDA-Public Use
  Company Number: US-AMGEN-USASP2012040241

PATIENT
  Age: 52 Year
  Sex: Female

DRUGS (2)
  1. ENBREL [Suspect]
     Indication: PSORIATIC ARTHROPATHY
     Dosage: 50 MG, 2 TIMES/WK
     Dates: start: 20090601
  2. ENBREL [Suspect]
     Indication: PSORIASIS

REACTIONS (6)
  - GUTTATE PSORIASIS [None]
  - IMPAIRED HEALING [None]
  - POST PROCEDURAL INFECTION [None]
  - PSORIASIS [None]
  - CYST [None]
  - PSORIATIC ARTHROPATHY [None]
